FAERS Safety Report 9340013 (Version 1)
Quarter: 2013Q2

REPORT INFORMATION
  Report Type: Spontaneous
  Country: FR (occurrence: FR)
  Receive Date: 20130610
  Receipt Date: 20130610
  Transmission Date: 20140414
  Serious: Yes (Hospitalization, Other)
  Sender: FDA-Public Use
  Company Number: FR-BRISTOL-MYERS SQUIBB COMPANY-18975763

PATIENT
  Age: 69 Year
  Sex: Male

DRUGS (6)
  1. HYDREA CAPS 500 MG [Suspect]
     Indication: ESSENTIAL THROMBOCYTHAEMIA
     Dosage: SEP-2005 TO JUL-2006 (BID)
     Route: 048
     Dates: start: 20130408, end: 20130411
  2. VERCYTE [Concomitant]
     Indication: ESSENTIAL THROMBOCYTHAEMIA
  3. PLAVIX [Concomitant]
     Dates: start: 200901
  4. COVERSYL [Concomitant]
     Dosage: STOPPED TEMPORARILY ON THE 11-APR-2013
     Dates: start: 200901
  5. TENORMINE [Concomitant]
     Dates: start: 200901
  6. CRESTOR [Concomitant]
     Dates: start: 201101

REACTIONS (6)
  - Pyrexia [Recovered/Resolved]
  - Asthenia [Recovered/Resolved]
  - Interstitial lung disease [Recovered/Resolved]
  - Skin discolouration [Recovered/Resolved]
  - Hypotension [Recovered/Resolved]
  - Off label use [Unknown]
